FAERS Safety Report 7423817-8 (Version None)
Quarter: 2011Q2

REPORT INFORMATION
  Report Type: 
  Country: None (occurrence: None)
  Receive Date: 20110411
  Receipt Date: 20110321
  Transmission Date: 20111010
  Serious: Yes (Hospitalization, Other)
  Sender: FDA-Public Use
  Company Number: 030065

PATIENT
  Age: 73 Year
  Sex: Male

DRUGS (5)
  1. LEVETIRACETAM [Suspect]
     Dosage: 1000 MG
  2. TOPIRAMATE [Concomitant]
  3. PHENYTOIN [Concomitant]
  4. LAMOTRIGINE [Suspect]
     Dosage: 200 MG
  5. PHENOBARBITAL [Concomitant]

REACTIONS (14)
  - HYPERSENSITIVITY [None]
  - SLEEP DISORDER [None]
  - MUSCLE SPASMS [None]
  - AREFLEXIA [None]
  - ATAXIA [None]
  - POLYDIPSIA PSYCHOGENIC [None]
  - CORTICAL DYSPLASIA [None]
  - IRRITABILITY [None]
  - GRAND MAL CONVULSION [None]
  - FALL [None]
  - UNEVALUABLE EVENT [None]
  - DECREASED VIBRATORY SENSE [None]
  - STATUS EPILEPTICUS [None]
  - GAIT DISTURBANCE [None]
